FAERS Safety Report 8877537 (Version 1)
Quarter: 2012Q4

REPORT INFORMATION
  Report Type: 
  Country: EG (occurrence: EG)
  Receive Date: 20121024
  Receipt Date: 20121024
  Transmission Date: 20130627
  Serious: Yes (Death)
  Sender: FDA-Public Use
  Company Number: EG-PFIZER INC-2012263291

PATIENT
  Age: 60 Year
  Sex: Female

DRUGS (1)
  1. TYGACIL [Suspect]
     Dosage: 50 mg, 1x/day
     Route: 042
     Dates: start: 20121002, end: 20121012

REACTIONS (1)
  - Death [Fatal]
